FAERS Safety Report 9729462 (Version 1)
Quarter: 2013Q4

REPORT INFORMATION
  Report Type: Spontaneous
  Country: US (occurrence: US)
  Receive Date: 20131204
  Receipt Date: 20131204
  Transmission Date: 20140711
  Serious: No
  Sender: FDA-Public Use
  Company Number: US-GILEAD-2009-0021517

PATIENT
  Sex: Female
  Weight: 68.04 kg

DRUGS (11)
  1. LETAIRIS [Suspect]
     Indication: PULMONARY ARTERIAL HYPERTENSION
     Route: 048
     Dates: start: 20090212
  2. ENALAPRIL [Concomitant]
  3. FEXOFENADINE HCL [Concomitant]
  4. TRIAMTERENE-HCTZ [Concomitant]
  5. CRESTOR [Concomitant]
  6. PLAVIX [Concomitant]
  7. BONIVA [Concomitant]
  8. LEXAPRO [Concomitant]
  9. NEXIUM [Concomitant]
  10. NASONEX [Concomitant]
  11. MIRALAX [Concomitant]

REACTIONS (6)
  - Pyrexia [Recovering/Resolving]
  - Diarrhoea [Recovering/Resolving]
  - Malaise [Recovering/Resolving]
  - Eye pain [Recovering/Resolving]
  - Pain [Recovering/Resolving]
  - Abdominal pain upper [Recovering/Resolving]
